FAERS Safety Report 25496388 (Version 1)
Quarter: 2025Q2

REPORT INFORMATION
  Report Type: Spontaneous
  Country: US (occurrence: None)
  Receive Date: 20250629
  Receipt Date: 20250629
  Transmission Date: 20250716
  Serious: Yes (Life-Threatening, Hospitalization)
  Sender: FDA-CTU
  Company Number: None

PATIENT
  Age: 34 Year
  Sex: Male
  Weight: 61 kg

DRUGS (7)
  1. FIASP [Suspect]
     Active Substance: INSULIN ASPART
  2. DEXTROSE [Suspect]
     Active Substance: DEXTROSE MONOHYDRATE
  3. Amodipine [Concomitant]
  4. HYDRALAZINE [Concomitant]
     Active Substance: HYDRALAZINE HYDROCHLORIDE
  5. CARVEDILOL [Concomitant]
     Active Substance: CARVEDILOL
  6. Dexcom G7 [Concomitant]
  7. ILET BETA BIONIC [Concomitant]

REACTIONS (5)
  - Hypoglycaemia [None]
  - Loss of consciousness [None]
  - Road traffic accident [None]
  - Diabetic ketoacidosis [None]
  - Diabetes mellitus inadequate control [None]

NARRATIVE: CASE EVENT DATE: 20250628
